FAERS Safety Report 7541927-1 (Version None)
Quarter: 2011Q2

REPORT INFORMATION
  Report Type: 
  Country: None (occurrence: None)
  Receive Date: 20110524
  Receipt Date: 20110314
  Transmission Date: 20111010
  Serious: No
  Sender: FDA-Public Use
  Company Number: 029292

PATIENT
  Sex: Male
  Weight: 99.8 kg

DRUGS (4)
  1. MULTI-VITAMIN [Concomitant]
  2. VITAMIN D [Concomitant]
  3. CIMZIA [Suspect]
     Indication: CROHN'S DISEASE
     Dosage: 400 MG 1X/MONTH, DOSE: PFS START DATE: 14 MONTHS AGO SUBCUTANEOUS
     Route: 058
     Dates: start: 20090101
  4. LOSARTAN POTASSIUM [Concomitant]

REACTIONS (1)
  - TENDONITIS [None]
